FAERS Safety Report 20702381 (Version 1)
Quarter: 2022Q2

REPORT INFORMATION
  Report Type: Spontaneous
  Country: US (occurrence: US)
  Receive Date: 20220412
  Receipt Date: 20220412
  Transmission Date: 20220721
  Serious: No
  Sender: FDA-Public Use
  Company Number: US-PFIZER INC-202200342982

PATIENT
  Age: 65 Year
  Sex: Female
  Weight: 104.33 kg

DRUGS (8)
  1. IBRANCE [Suspect]
     Active Substance: PALBOCICLIB
     Indication: Breast cancer metastatic
     Dosage: 100 MG, 1X/DAY (ONCE A DAY)
     Dates: start: 20190214
  2. LETROZOLE [Suspect]
     Active Substance: LETROZOLE
     Indication: Breast cancer metastatic
     Dosage: 2.5 MG, 1X/DAY (ONCE A DAY)
  3. LETROZOLE [Suspect]
     Active Substance: LETROZOLE
     Dosage: UNK
  4. SYNTHROID [Concomitant]
     Active Substance: LEVOTHYROXINE SODIUM
     Indication: Hypothyroidism
     Dosage: 137 UG, 1X/DAY (ONCE A DAY)
     Dates: start: 1978
  5. CYTOMEL [Concomitant]
     Active Substance: LIOTHYRONINE SODIUM
     Indication: Thyroid therapy
     Dosage: 5 UG, 1X/DAY (ONCE A DAY)
     Dates: start: 2016
  6. NATPARA (PARATHYROID HORMONE) [Concomitant]
     Active Substance: PARATHYROID HORMONE
     Indication: Hypoparathyroidism
     Dosage: 75 UG, DAILY (EVERY MORNING)
     Route: 058
     Dates: start: 2017
  7. CHOLECALCIFEROL [Concomitant]
     Active Substance: CHOLECALCIFEROL
     Indication: Vitamin supplementation
     Dosage: UNK
  8. CALCITRIOL [Concomitant]
     Active Substance: CALCITRIOL
     Dosage: 0.25 UG, 1X/DAY (NIGHTLY)

REACTIONS (6)
  - Diarrhoea [Recovering/Resolving]
  - Vulvovaginal mycotic infection [Unknown]
  - Fungal infection [Unknown]
  - Pain [Unknown]
  - Asthenia [Unknown]
  - Back pain [Unknown]

NARRATIVE: CASE EVENT DATE: 20220203
